FAERS Safety Report 5689563-6 (Version None)
Quarter: 2008Q1

REPORT INFORMATION
  Report Type: 
  Country: None (occurrence: None)
  Receive Date: 20080331
  Receipt Date: 20080319
  Transmission Date: 20080703
  Serious: Yes (Hospitalization)
  Sender: FDA-Public Use
  Company Number: JP-PFIZER INC-2008027336

PATIENT
  Sex: Female
  Weight: 41.3 kg

DRUGS (13)
  1. AMLODIN [Suspect]
     Indication: HYPERTENSION
     Route: 048
  2. DIGOXIN [Suspect]
     Dosage: DAILY DOSE:.125MG
     Route: 048
  3. ASPARA-CA [Concomitant]
     Dosage: DAILY DOSE:400MG
     Route: 048
  4. BEZATOL - SLOW RELEASE [Concomitant]
     Dosage: DAILY DOSE:200MG
     Route: 048
  5. RIVOTRIL [Concomitant]
     Dosage: DAILY DOSE:.5MG
     Route: 048
  6. CYANOCOBALAMIN [Concomitant]
     Dosage: TEXT:3 DOSAGE FORM
     Route: 048
  7. TERNELIN [Concomitant]
     Dosage: DAILY DOSE:3MG
     Route: 048
  8. NATEGLINIDE [Concomitant]
     Dosage: DAILY DOSE:270MG
     Route: 048
  9. FAMOTIDINE [Concomitant]
     Dosage: DAILY DOSE:20MG
     Route: 048
  10. OPALMON [Concomitant]
     Dosage: DAILY DOSE:15MCG
     Route: 048
  11. HERBESSER R [Concomitant]
     Dosage: TEXT:2 DOSAGE FORM
     Route: 048
  12. FERROMIA [Concomitant]
     Dosage: DAILY DOSE:100MG
     Route: 048
     Dates: start: 20070402, end: 20070828
  13. OLMESARTAN MEDOXOMIL [Concomitant]
     Dosage: DAILY DOSE:10MG
     Route: 048

REACTIONS (3)
  - BRADYCARDIA [None]
  - RENAL DISORDER [None]
  - VOMITING [None]
